FAERS Safety Report 5752613-2 (Version None)
Quarter: 2008Q2

REPORT INFORMATION
  Report Type: 
  Country: None (occurrence: None)
  Receive Date: 20080529
  Receipt Date: 20080520
  Transmission Date: 20081010
  Serious: Yes (Hospitalization)
  Sender: FDA-Public Use
  Company Number: FR-ABBOTT-08P-056-0452924-00

PATIENT
  Age: 57 Year
  Sex: Female

DRUGS (1)
  1. HUMIRA [Suspect]
     Indication: RHEUMATOID ARTHRITIS
     Dosage: ONLY 1 INJECTION
     Route: 058
     Dates: start: 20080421

REACTIONS (7)
  - ARTHRITIS [None]
  - BACK PAIN [None]
  - CHILLS [None]
  - ERYSIPELAS [None]
  - HYPERTHERMIA [None]
  - INTERVERTEBRAL DISCITIS [None]
  - NASOPHARYNGITIS [None]
